FAERS Safety Report 13769285 (Version 1)
Quarter: 2017Q3

REPORT INFORMATION
  Report Type: Report from Study
  Country: US (occurrence: US)
  Receive Date: 20170719
  Receipt Date: 20170719
  Transmission Date: 20171127
  Serious: Yes (Hospitalization)
  Sender: FDA-Public Use
  Company Number: US-ACTELION-A-US2017-156674

PATIENT
  Age: 60 Year
  Sex: Female

DRUGS (7)
  1. CITRACAL + D [Concomitant]
     Active Substance: CALCIUM CITRATE\VITAMIN D
     Dosage: UNK
     Dates: start: 20140820
  2. CYMBALTA [Concomitant]
     Active Substance: DULOXETINE HYDROCHLORIDE
     Dosage: UNK, QD
     Route: 048
     Dates: start: 20140824
  3. NIFEDICAL XL [Concomitant]
     Active Substance: NIFEDIPINE
     Dosage: UNK
     Dates: start: 20140820
  4. FIBER [Concomitant]
     Active Substance: PSYLLIUM HUSK
     Dosage: UNK
     Route: 048
     Dates: start: 20150918
  5. ZAVESCA [Suspect]
     Active Substance: MIGLUSTAT
     Indication: LIPIDOSIS
     Dosage: 100 MG, TID
     Route: 048
     Dates: start: 20120406
  6. ALEVE [Concomitant]
     Active Substance: NAPROXEN SODIUM
     Dosage: UNK
     Route: 048
     Dates: start: 20090713
  7. CHLORDIAZEPOXIDE. [Concomitant]
     Active Substance: CHLORDIAZEPOXIDE
     Dosage: UNK
     Route: 048
     Dates: start: 20090713

REACTIONS (2)
  - Toxicity to various agents [Unknown]
  - Rotator cuff repair [Unknown]
